FAERS Safety Report 15403506 (Version 1)
Quarter: 2018Q3

REPORT INFORMATION
  Report Type: Spontaneous
  Country: US (occurrence: US)
  Receive Date: 20180919
  Receipt Date: 20180919
  Transmission Date: 20181010
  Serious: No
  Sender: FDA-Public Use
  Company Number: US-PFIZER INC-2018375350

PATIENT
  Age: 53 Year
  Sex: Female

DRUGS (1)
  1. METHOTREXATE SODIUM. [Suspect]
     Active Substance: METHOTREXATE SODIUM
     Dosage: UNK

REACTIONS (7)
  - Nausea [Unknown]
  - Skin atrophy [Unknown]
  - Drug hypersensitivity [Unknown]
  - Asthenia [Unknown]
  - Drug intolerance [Unknown]
  - Alopecia [Unknown]
  - Anxiety [Unknown]
